FAERS Safety Report 8559561-3 (Version None)
Quarter: 2012Q3

REPORT INFORMATION
  Report Type: 
  Country: None (occurrence: None)
  Receive Date: 20120802
  Receipt Date: 20120723
  Transmission Date: 20120928
  Serious: Yes (Hospitalization, Other)
  Sender: FDA-Public Use
  Company Number: FR-TEVA-350071ISR

PATIENT
  Sex: Female

DRUGS (2)
  1. METHOTREXATE [Interacting]
     Indication: PSORIATIC ARTHROPATHY
     Route: 048
     Dates: end: 20120701
  2. AMOXICILLIN [Suspect]
     Indication: INFECTION
     Dosage: 2 GRAM;
     Route: 048
     Dates: start: 20120701, end: 20120701

REACTIONS (3)
  - TOXIC SKIN ERUPTION [None]
  - DRUG RASH WITH EOSINOPHILIA AND SYSTEMIC SYMPTOMS [None]
  - DRUG INTERACTION [None]
